FAERS Safety Report 5128815-5 (Version None)
Quarter: 2006Q4

REPORT INFORMATION
  Report Type: 
  Country: None (occurrence: None)
  Receive Date: 20061011
  Receipt Date: 20060922
  Transmission Date: 20070319
  Serious: Yes (Other)
  Sender: FDA-Public Use
  Company Number: US200609005727

PATIENT
  Age: 76 Year
  Sex: Male

DRUGS (1)
  1. HUMALOG [Suspect]
     Indication: BLOOD GLUCOSE INCREASED

REACTIONS (4)
  - BLOOD GLUCOSE INCREASED [None]
  - CARPAL TUNNEL SYNDROME [None]
  - DEVICE FAILURE [None]
  - PHARMACEUTICAL PRODUCT COMPLAINT [None]
